FAERS Safety Report 17071307 (Version 1)
Quarter: 2019Q4

REPORT INFORMATION
  Report Type: Report from Study
  Country: US (occurrence: US)
  Receive Date: 20191125
  Receipt Date: 20191125
  Transmission Date: 20200122
  Serious: No
  Sender: FDA-Public Use
  Company Number: US-IPSEN BIOPHARMACEUTICALS, INC.-2019-22263

PATIENT
  Age: 14 Year

DRUGS (2)
  1. DYSPORT [Suspect]
     Active Substance: ABOBOTULINUMTOXINA
     Indication: MUSCLE SPASTICITY
     Dosage: LOWER LIMB (DISTAL MUSCLES- 200), UPPER LIMB (FINGER FLEXORS- 100, WRIST FLEXORS- 100, ELBOW FLEXORS
     Route: 030
  2. DYSPORT [Suspect]
     Active Substance: ABOBOTULINUMTOXINA
     Indication: MUSCLE SPASTICITY

REACTIONS (2)
  - Prescribed overdose [Unknown]
  - Muscle spasticity [Unknown]
